FAERS Safety Report 25477099 (Version 9)
Quarter: 2025Q3

REPORT INFORMATION
  Report Type: Report from Study
  Country: US (occurrence: US)
  Receive Date: 20250625
  Receipt Date: 20250923
  Transmission Date: 20251021
  Serious: Yes (Hospitalization, Other)
  Sender: ACADIA PHARMACEUTICALS
  Company Number: US-ACADIA PHARMACEUTICALS INC.-ACA-2025-PIM-007461

PATIENT
  Age: 74 Year
  Sex: Male

DRUGS (8)
  1. NUPLAZID [Suspect]
     Active Substance: PIMAVANSERIN TARTRATE
     Indication: Parkinson^s disease psychosis
     Dosage: 34 MILLIGRAM, QD
     Route: 048
  2. CARBIDOPA\LEVODOPA [Concomitant]
     Active Substance: CARBIDOPA\LEVODOPA
  3. DONEPEZIL [Concomitant]
     Active Substance: DONEPEZIL
  4. AMLODIPINE [Concomitant]
     Active Substance: AMLODIPINE BESYLATE
  5. FUROSEMIDE [Concomitant]
     Active Substance: FUROSEMIDE
  6. METOPROLOL [Concomitant]
     Active Substance: METOPROLOL
  7. LISINOPRIL [Concomitant]
     Active Substance: LISINOPRIL
  8. POTASSIUM [Concomitant]
     Active Substance: POTASSIUM

REACTIONS (8)
  - Rib fracture [Unknown]
  - Haemorrhage urinary tract [Unknown]
  - Mental disorder [Unknown]
  - Fall [Unknown]
  - Confusional state [Not Recovered/Not Resolved]
  - Parkinson^s disease [Unknown]
  - Dysgraphia [Unknown]
  - Reading disorder [Unknown]

NARRATIVE: CASE EVENT DATE: 20250708
